FAERS Safety Report 5227447-8 (Version None)
Quarter: 2007Q1

REPORT INFORMATION
  Report Type: 
  Country: None (occurrence: None)
  Receive Date: 20070202
  Receipt Date: 20070123
  Transmission Date: 20070707
  Serious: Yes (Other)
  Sender: FDA-Public Use
  Company Number: PHEH2007US01220

PATIENT
  Age: 70 Year
  Sex: Female

DRUGS (3)
  1. ZOLEDRONATE [Suspect]
     Indication: METASTASES TO BONE
     Dosage: EVERY OTHER MONTH
  2. ZOLEDRONATE [Suspect]
     Dosage: EVERY FOUR MONTHS
  3. ZOLEDRONATE [Suspect]
     Dosage: 4 MG EVERY FOUR WEEKS

REACTIONS (2)
  - BONE PAIN [None]
  - OSTEONECROSIS [None]
